FAERS Safety Report 21730369 (Version 1)
Quarter: 2022Q4

REPORT INFORMATION
  Report Type: Spontaneous
  Country: US (occurrence: US)
  Receive Date: 20221214
  Receipt Date: 20221214
  Transmission Date: 20230112
  Serious: Yes (Hospitalization, Other)
  Sender: FDA-Public Use
  Company Number: US-SUN PHARMACEUTICAL INDUSTRIES LTD-2022R1-368370

PATIENT
  Age: 58 Year
  Sex: Male

DRUGS (1)
  1. ACETAZOLAMIDE [Suspect]
     Active Substance: ACETAZOLAMIDE
     Indication: Cataract operation
     Dosage: 500 MILLIGRAM
     Route: 065

REACTIONS (2)
  - Paralysis [Recovering/Resolving]
  - Confusional state [Recovering/Resolving]
